FAERS Safety Report 13156930 (Version 3)
Quarter: 2017Q3

REPORT INFORMATION
  Report Type: Report from Study
  Country: None (occurrence: HU)
  Receive Date: 20170127
  Receipt Date: 20170926
  Transmission Date: 20171127
  Serious: Yes (Hospitalization)
  Sender: FDA-Public Use
  Company Number: HU-ABBVIE-16K-076-1818221-00

PATIENT
  Age: 74 Year
  Sex: Female
  Weight: 56 kg

DRUGS (2)
  1. REQUIP [Concomitant]
     Active Substance: ROPINIROLE HYDROCHLORIDE
     Indication: PARKINSON^S DISEASE
     Dosage: 1 TABLET IN THE MORNING
     Route: 048
  2. DUODOPA [Suspect]
     Active Substance: CARBIDOPA\LEVODOPA
     Indication: PARKINSON^S DISEASE
     Dosage: MD: 3.6 ML, CD: 0.8 ML, ED: 0.5 ML
     Route: 050
     Dates: start: 20161210, end: 20161210

REACTIONS (3)
  - Respiratory failure [Recovered/Resolved]
  - Stoma site discharge [Unknown]
  - Abdominal hernia [Unknown]

NARRATIVE: CASE EVENT DATE: 2016
